FAERS Safety Report 8411227 (Version 2)
Quarter: 2013Q2

REPORT INFORMATION
  Report Type: Spontaneous
  Country: US (occurrence: None)
  Receive Date: 20111227
  Receipt Date: 20120426
  Transmission Date: 20140414
  Serious: No
  Sender: FDA-Public Use
  Company Number: PHEH2011US06526

PATIENT
  Age: 24 Year
  Sex: Female

DRUGS (5)
  1. GILENYA [Suspect]
     Indication: MULTIPLE SCLEROSIS
     Route: 048
     Dates: start: 20110927
  2. IMITREX [Concomitant]
  3. CYMBALTA [Concomitant]
  4. PROPRANOLOL [Concomitant]
  5. AMANTADINE HYDROCHLORIDE [Concomitant]

REACTIONS (3)
  - CHILLS [None]
  - NAUSEA [None]
  - FATIGUE [None]
